FAERS Safety Report 4289105-6 (Version None)
Quarter: 2004Q1

REPORT INFORMATION
  Report Type: 
  Country: None (occurrence: None)
  Receive Date: 20040126
  Receipt Date: 20031105
  Transmission Date: 20041129
  Serious: No
  Sender: FDA-Public Use
  Company Number: USA030433359

PATIENT
  Age: 61 Year
  Sex: Female
  Weight: 40 kg

DRUGS (6)
  1. FORTEO [Suspect]
     Indication: OSTEOPOROSIS
     Dates: start: 20030320
  2. ACTONEL [Concomitant]
  3. MULTI-VITAMIN [Concomitant]
  4. NORPRAMIN [Concomitant]
  5. VITAMIN E [Concomitant]
  6. VITAMIN B6 [Concomitant]

REACTIONS (2)
  - BONE PAIN [None]
  - PLATELET COUNT INCREASED [None]
